FAERS Safety Report 8787922 (Version 2)
Quarter: 2013Q2

REPORT INFORMATION
  Report Type: Spontaneous
  Country: US (occurrence: US)
  Receive Date: 20120914
  Receipt Date: 20130404
  Transmission Date: 20140414
  Serious: Yes (Death, Other)
  Sender: FDA-Public Use
  Company Number: US-ROCHE-1127964

PATIENT
  Age: 79 Year
  Sex: Female

DRUGS (2)
  1. AVASTIN [Suspect]
     Indication: BREAST CANCER FEMALE
     Route: 065
     Dates: start: 20050517, end: 20050830
  2. AVASTIN [Suspect]
     Route: 065
     Dates: start: 20060207, end: 20060523

REACTIONS (2)
  - Death [Fatal]
  - Ascites [Unknown]
